FAERS Safety Report 18365617 (Version 1)
Quarter: 2020Q4

REPORT INFORMATION
  Report Type: Other
  Country: PT (occurrence: PT)
  Receive Date: 20201009
  Receipt Date: 20201009
  Transmission Date: 20210114
  Serious: Yes (Life-Threatening, Hospitalization)
  Sender: FDA-Public Use
  Company Number: PT-EMD SERONO-9190165

PATIENT
  Age: 54 Year
  Sex: Male

DRUGS (3)
  1. ACARBOSE. [Concomitant]
     Active Substance: ACARBOSE
     Indication: DIABETES MELLITUS
  2. METFORMIN [Suspect]
     Active Substance: METFORMIN HYDROCHLORIDE
     Indication: DIABETES MELLITUS
  3. EMPAGLIFLOZIN [Concomitant]
     Active Substance: EMPAGLIFLOZIN
     Indication: DIABETES MELLITUS

REACTIONS (7)
  - Acute kidney injury [Unknown]
  - Toxicity to various agents [Unknown]
  - Lactic acidosis [Unknown]
  - Acetonaemia [Unknown]
  - Multiple organ dysfunction syndrome [Unknown]
  - Acidosis [Unknown]
  - Hypoglycaemia [Unknown]
